FAERS Safety Report 7021668-X (Version None)
Quarter: 2010Q3

REPORT INFORMATION
  Report Type: 
  Country: None (occurrence: None)
  Receive Date: 20100928
  Receipt Date: 20100914
  Transmission Date: 20110219
  Serious: Yes (Other)
  Sender: FDA-Public Use
  Company Number: 2010AP001993

PATIENT
  Age: 56 Year
  Sex: Female

DRUGS (1)
  1. TERSINAPINE HYDROCHLORIDE (TERBINAFINE HYDROCHLORIDE) [Suspect]
     Dosage: 250 MG;PO
     Route: 048
     Dates: start: 20100706, end: 20100801

REACTIONS (3)
  - ANAL HAEMORRHAGE [None]
  - COLITIS ULCERATIVE [None]
  - CONDITION AGGRAVATED [None]
